FAERS Safety Report 5360468-3 (Version None)
Quarter: 2007Q2

REPORT INFORMATION
  Report Type: 
  Country: None (occurrence: None)
  Receive Date: 20070618
  Receipt Date: 20070608
  Transmission Date: 20071010
  Serious: Yes (Hospitalization, Other)
  Sender: FDA-Public Use
  Company Number: DE-JNJFOC-20070504100

PATIENT
  Age: 61 Year
  Sex: Male

DRUGS (6)
  1. TAVANIC [Suspect]
     Indication: PROPHYLAXIS
     Route: 048
  2. ONCASPAR [Suspect]
     Indication: ACUTE LYMPHOCYTIC LEUKAEMIA
     Route: 042
  3. PURINETHOL [Suspect]
     Indication: ACUTE LYMPHOCYTIC LEUKAEMIA
     Route: 048
  4. DIFLUCAN [Suspect]
     Indication: PROPHYLAXIS
     Route: 048
  5. CYCLOPHOSPHAMIDE [Concomitant]
     Indication: ACUTE LYMPHOCYTIC LEUKAEMIA
     Route: 065
  6. ALEXAN [Concomitant]
     Indication: ACUTE LYMPHOCYTIC LEUKAEMIA
     Route: 065

REACTIONS (2)
  - JAUNDICE [None]
  - PANCREATITIS NECROTISING [None]
